FAERS Safety Report 16155091 (Version 5)
Quarter: 2019Q4

REPORT INFORMATION
  Report Type: Spontaneous
  Country: US (occurrence: US)
  Receive Date: 20190403
  Receipt Date: 20191205
  Transmission Date: 20200122
  Serious: No
  Sender: FDA-Public Use
  Company Number: US-ACTELION-A-NJ2019-187720

PATIENT
  Sex: Female

DRUGS (1)
  1. OPSUMIT [Suspect]
     Active Substance: MACITENTAN
     Indication: PULMONARY ARTERIAL HYPERTENSION
     Dosage: 10 MG, QD
     Route: 048
     Dates: start: 20181210

REACTIONS (6)
  - Influenza like illness [Recovered/Resolved]
  - Bladder disorder [Unknown]
  - Neuralgia [Unknown]
  - Back pain [Unknown]
  - Incontinence [Unknown]
  - Bronchitis [Unknown]
